FAERS Safety Report 21397452 (Version 2)
Quarter: 2022Q4

REPORT INFORMATION
  Report Type: Report from Study
  Country: DE (occurrence: DE)
  Receive Date: 20220930
  Receipt Date: 20221030
  Transmission Date: 20230113
  Serious: Yes (Hospitalization)
  Sender: FDA-Public Use
  Company Number: DE-EMA-DD-20220912-7182781-110329

PATIENT
  Age: 75 Year
  Sex: Female

DRUGS (32)
  1. METHOTREXATE [Suspect]
     Active Substance: METHOTREXATE
     Indication: Rheumatoid arthritis
     Dosage: 15 DOSAGE FORM , UNIT DOSE : 15 DOSAGE FORM, THERAPY END DATE : ASKU
     Route: 065
     Dates: start: 20160504
  2. METHOTREXATE [Suspect]
     Active Substance: METHOTREXATE
     Dosage: 7.5 DOSAGE FORM, UNIT DOSE : 7. 5 DOSAGE FORM, DURATION : 176 DAYS
     Route: 065
     Dates: start: 20140305, end: 20140827
  3. METHOTREXATE [Suspect]
     Active Substance: METHOTREXATE
     Dosage: UNK, THERAPY END DATE : ASKU
     Route: 065
     Dates: start: 20150128
  4. METHOTREXATE [Suspect]
     Active Substance: METHOTREXATE
     Dosage: 15 MILLIGRAM, UNIT DOSE : 15 MG, THERAPY END DATE : ASKU
     Route: 065
     Dates: start: 20210825
  5. METHOTREXATE [Suspect]
     Active Substance: METHOTREXATE
     Dosage: 15 MILLIGRAM, THERAPY END DATE : ASKU
     Route: 065
     Dates: start: 20121203
  6. METHOTREXATE [Suspect]
     Active Substance: METHOTREXATE
     Dosage: 7.5 MILLIGRAM, THERAPY END DATE : ASKU, UNIT DOSE : 7.5 MG
     Dates: start: 20140827
  7. METHOTREXATE [Suspect]
     Active Substance: METHOTREXATE
     Dosage: 15 MILLIGRAM, UNIT DOSE : 15 MG, THERAPY END DATE : ASKU
     Route: 065
     Dates: start: 20180913
  8. METHOTREXATE [Suspect]
     Active Substance: METHOTREXATE
     Dosage: 10 DOSAGE FORM, UNIT DOSE : 10 DOSAGE FORM, DURATION : 246 DAYS
     Route: 065
     Dates: start: 20150902, end: 20160504
  9. METHOTREXATE [Suspect]
     Active Substance: METHOTREXATE
     Dosage: 15 MILLIGRAM, THERAPY END DATE : ASKU, UNIT DOSE : 15 MG
     Route: 065
     Dates: start: 20111207
  10. METHOTREXATE [Suspect]
     Active Substance: METHOTREXATE
     Dosage: 15 MILLIGRAM, UNIT DOSE :  15 MG, THERAPY END DATE : ASKU
     Route: 065
     Dates: start: 20161104
  11. METHOTREXATE [Suspect]
     Active Substance: METHOTREXATE
     Dosage: 15 MILLIGRAM, UNIT DOSE :  15 MG, THERAPY END DATE : ASKU
     Route: 065
     Dates: start: 20160504
  12. METHOTREXATE [Suspect]
     Active Substance: METHOTREXATE
     Dosage: 15 MILLIGRAM, UNIT DOSE :  15 MG, THERAPY END DATE : ASKU
     Route: 065
     Dates: start: 20131016
  13. METHOTREXATE [Suspect]
     Active Substance: METHOTREXATE
     Dosage: UNK, DURATION : 217 DAYS
     Dates: start: 20150128, end: 20150902
  14. METHOTREXATE [Suspect]
     Active Substance: METHOTREXATE
     Dosage: 15 MILLIGRAM, UNIT DOSE :  15 MG, THERAPY END DATE : ASKU
     Route: 065
     Dates: start: 20210211
  15. METHOTREXATE [Suspect]
     Active Substance: METHOTREXATE
     Dosage: 15 MILLIGRAM, UNIT DOSE :  15 MG, THERAPY END DATE : ASKU
     Route: 065
     Dates: start: 20171115
  16. METHOTREXATE [Suspect]
     Active Substance: METHOTREXATE
     Dosage: 15 DOSAGE FORM, UNIT DOSE : 15 DOSAGE FORM, DURATION : 794 DAYS
     Route: 065
     Dates: start: 20110815, end: 20131016
  17. METHOTREXATE [Suspect]
     Active Substance: METHOTREXATE
     Dosage: 15 MILLIGRAM, UNIT DOSE :  15 MG, THERAPY END DATE : ASKU
     Route: 065
     Dates: start: 20201007
  18. METHOTREXATE [Suspect]
     Active Substance: METHOTREXATE
     Dosage: 15 MILLIGRAM, UNIT DOSE :  15 MG, THERAPY END DATE : ASKU
     Route: 065
     Dates: start: 20110815
  19. METHOTREXATE [Suspect]
     Active Substance: METHOTREXATE
     Dosage: 7.5 MILLIGRAM, UNIT DOSE :7.5 MILLIGRAM, DURATION : 175 DAYS
     Route: 065
     Dates: start: 20140305, end: 20140827
  20. METHOTREXATE [Suspect]
     Active Substance: METHOTREXATE
     Dosage: 15 MILLIGRAM, UNIT DOSE :15 MILLIGRAM,THERAPY END DATE : ASKU
     Route: 065
     Dates: start: 20120604
  21. METHOTREXATE [Suspect]
     Active Substance: METHOTREXATE
     Dosage: 15 MILLIGRAM, UNIT DOSE :  15 MG, THERAPY END DATE : ASKU
     Route: 065
     Dates: start: 20200304
  22. METHOTREXATE [Suspect]
     Active Substance: METHOTREXATE
     Dosage: 10 MILLIGRAM, UNIT DOSE :  10 MG, THERAPY END DATE : ASKU
     Route: 065
     Dates: start: 20150902
  23. METHOTREXATE [Suspect]
     Active Substance: METHOTREXATE
     Dosage: 15 MILLIGRAM, UNIT DOSE :  15 MG, THERAPY END DATE : ASKU
     Route: 065
     Dates: start: 20191023
  24. HUMIRA [Suspect]
     Active Substance: ADALIMUMAB
     Indication: Rheumatoid arthritis
     Dosage: 40 MILLIGRAM, UNIT DOSE : 40 MG, DURATION : 2 YEARS
     Route: 065
     Dates: start: 201109, end: 201312
  25. HUMIRA [Suspect]
     Active Substance: ADALIMUMAB
     Dosage: UNK, UNIT DOSE : 40 MG, THERAPY END DATE : NASK
     Route: 065
     Dates: start: 202102
  26. HYDROXYCHLOROQUINE [Concomitant]
     Active Substance: HYDROXYCHLOROQUINE
     Indication: Rheumatoid arthritis
     Dosage: 250 DOSAGE FORM, DURATION : 217 DAYS, UNIT DOSE : 250 MG
     Dates: start: 20150128, end: 20150902
  27. HYDROXYCHLOROQUINE [Concomitant]
     Active Substance: HYDROXYCHLOROQUINE
     Dosage: 250 MILLIGRAM, UNIT DOSE :   250 MG, THERAPY END DATE : ASKU
     Dates: start: 20150902
  28. HYDROXYCHLOROQUINE [Concomitant]
     Active Substance: HYDROXYCHLOROQUINE
     Dosage: UNK, DURATION : 377 DAYS
     Dates: start: 20161104, end: 20171115
  29. HYDROXYCHLOROQUINE [Concomitant]
     Active Substance: HYDROXYCHLOROQUINE
     Dosage: 250 MILLIGRAM, DURATION : 185 DAYS, UNIT DOSE : 250 MG
     Dates: start: 20160504, end: 20161104
  30. MABTHERA [Concomitant]
     Active Substance: RITUXIMAB
     Indication: Rheumatoid arthritis
     Dosage: 1000 MILLIGRAM, UNIT DOSE :   1000MG, DURATION : 5 MONTHS
     Dates: start: 201706, end: 20171115
  31. MABTHERA [Concomitant]
     Active Substance: RITUXIMAB
     Dosage: 1000 MILLIGRAM, UNIT DOSE : 1000MG, DURATION : 1 YEARS
     Dates: start: 201809, end: 20191023
  32. MABTHERA [Concomitant]
     Active Substance: RITUXIMAB
     Dosage: UNK, THERAPY START DATE :  ASKU
     Dates: start: 20200404

REACTIONS (3)
  - Pyrexia [Unknown]
  - Rheumatoid arthritis [Recovered/Resolved]
  - Femur fracture [Recovered/Resolved]

NARRATIVE: CASE EVENT DATE: 20210119
